FAERS Safety Report 4597636-4 (Version None)
Quarter: 2005Q1

REPORT INFORMATION
  Report Type: 
  Country: None (occurrence: None)
  Receive Date: 20050303
  Receipt Date: 20050228
  Transmission Date: 20050727
  Serious: Yes (Death, Hospitalization)
  Sender: FDA-Public Use
  Company Number: 116

PATIENT
  Age: 71 Year
  Sex: Female

DRUGS (14)
  1. MELPHALAN [Suspect]
     Indication: MULTIPLE MYELOMA
     Route: 042
     Dates: start: 20050125
  2. THALIDOMIDE [Suspect]
     Indication: MULTIPLE MYELOMA
     Route: 048
     Dates: start: 20041231
  3. FOLATE [Concomitant]
  4. NIFEREX [Concomitant]
  5. PRILOSEC [Concomitant]
  6. CALCIUM GLUCONATE [Concomitant]
  7. AREDIA [Concomitant]
  8. DEXAMETHASONE [Concomitant]
  9. BORTEZOMIB [Concomitant]
  10. CISPLATIN [Concomitant]
  11. ADRIAMYCIN PFS [Concomitant]
  12. CYCLOPHOSPHAMIDE [Concomitant]
  13. ETOPOSIDE [Concomitant]
  14. STEM CELL TRANSPLANT [Concomitant]
     Dates: start: 20041015

REACTIONS (17)
  - BRONCHOSPASM [None]
  - COUGH [None]
  - DIARRHOEA [None]
  - FEBRILE NEUTROPENIA [None]
  - GENERALISED OEDEMA [None]
  - HAEMOPTYSIS [None]
  - ILEUS [None]
  - MULTI-ORGAN FAILURE [None]
  - NAUSEA [None]
  - PLEURAL EFFUSION [None]
  - PNEUMONIA [None]
  - PULMONARY OEDEMA [None]
  - RENAL FAILURE [None]
  - RESPIRATORY DISTRESS [None]
  - RESPIRATORY SYNCYTIAL VIRUS INFECTION [None]
  - THROMBOCYTOPENIA [None]
  - VOMITING [None]
